FAERS Safety Report 7191487-2 (Version None)
Quarter: 2010Q4

REPORT INFORMATION
  Report Type: 
  Country: None (occurrence: None)
  Receive Date: 20101223
  Receipt Date: 20101123
  Transmission Date: 20110411
  Serious: Yes (Other)
  Sender: FDA-Public Use
  Company Number: US-BAYER-200811982NA

PATIENT
  Sex: Female
  Weight: 55 kg

DRUGS (41)
  1. MAGNEVIST [Suspect]
     Dates: start: 19961030, end: 19961030
  2. MAGNEVIST [Suspect]
     Indication: NUCLEAR MAGNETIC RESONANCE IMAGING ABDOMINAL
     Dates: start: 19970430, end: 19970430
  3. MAGNEVIST [Suspect]
     Dates: start: 19971117, end: 19971117
  4. MAGNEVIST [Suspect]
     Dates: start: 19981231, end: 19981231
  5. MAGNEVIST [Suspect]
     Dates: start: 19991109, end: 19991109
  6. MAGNEVIST [Suspect]
     Dates: start: 20001108, end: 20001108
  7. MAGNEVIST [Suspect]
     Dates: start: 20020130, end: 20020130
  8. MAGNEVIST [Suspect]
     Dates: start: 20050130, end: 20050130
  9. MAGNEVIST [Suspect]
     Dates: start: 20040520, end: 20040520
  10. MAGNEVIST [Suspect]
     Dates: start: 20030320, end: 20030320
  11. OMNISCAN [Suspect]
     Indication: NUCLEAR MAGNETIC RESONANCE IMAGING
     Dates: start: 20050130, end: 20050130
  12. OMNISCAN [Suspect]
     Dates: start: 20050320, end: 20050320
  13. EPOGEN [Concomitant]
  14. PREMPRO [Concomitant]
  15. SYNTHROID [Concomitant]
  16. FOLIC ACID [Concomitant]
  17. CELEBREX [Concomitant]
  18. THYROID THERAPY [Concomitant]
  19. ZESTRIL [Concomitant]
  20. ROCALTROL [Concomitant]
  21. NEPHROVITE [VIT C,VIT H,B5,B12,B9,B3,B6,B2,B1 HCL] [Concomitant]
  22. FERROUS SULFATE [Concomitant]
  23. MIACALCIN [Concomitant]
  24. RENAGEL [Concomitant]
  25. ALEVE [Concomitant]
  26. PROCARDIA [Concomitant]
  27. SENSIPAR [Concomitant]
  28. PROGRAF [Concomitant]
  29. MYFORTIC [Concomitant]
  30. PREDNISONE [Concomitant]
  31. SPIRONOLACTONE [Concomitant]
  32. ADVAIR [Concomitant]
  33. ZEMPLAR [Concomitant]
  34. EXFORGE [Concomitant]
  35. CYTOXAN [Concomitant]
     Dates: start: 19880101, end: 19910101
  36. METOPROLOL [Concomitant]
  37. ARANESP [Concomitant]
  38. ALTEPLASE [Concomitant]
  39. DEMADEX [Concomitant]
  40. CLONIDINE [Concomitant]
  41. AMLODIPINE BESYLATE [Concomitant]

REACTIONS (2)
  - MUSCLE CONTRACTURE [None]
  - NEPHROGENIC SYSTEMIC FIBROSIS [None]
